FAERS Safety Report 13670139 (Version 2)
Quarter: 2017Q3

REPORT INFORMATION
  Report Type: Report from Study
  Country: CA (occurrence: CA)
  Receive Date: 20170620
  Receipt Date: 20170913
  Transmission Date: 20171127
  Serious: Yes (Other)
  Sender: FDA-Public Use
  Company Number: CA-AMGEN-CANSL2017091724

PATIENT

DRUGS (1)
  1. PROLIA [Suspect]
     Active Substance: DENOSUMAB
     Indication: PRODUCT USED FOR UNKNOWN INDICATION
     Dosage: UNK
     Route: 065

REACTIONS (9)
  - Clavicle fracture [Unknown]
  - Hip fracture [Unknown]
  - Rib fracture [Unknown]
  - Fall [Unknown]
  - Lumbar vertebral fracture [Unknown]
  - Thoracic vertebral fracture [Unknown]
  - Cervical vertebral fracture [Unknown]
  - Renal failure [Unknown]
  - Pelvic fracture [Unknown]

NARRATIVE: CASE EVENT DATE: 2010
